FAERS Safety Report 10501159 (Version 1)
Quarter: 2014Q4

REPORT INFORMATION
  Report Type: Spontaneous
  Country: US (occurrence: None)
  Receive Date: 20141006
  Receipt Date: 20141006
  Transmission Date: 20150528
  Serious: Yes (Other)
  Sender: FDA-Public Use
  Company Number: None

PATIENT
  Age: 60 Year
  Sex: Female
  Weight: 71.67 kg

DRUGS (1)
  1. XELODA [Suspect]
     Active Substance: CAPECITABINE
     Indication: BREAST CANCER
     Dosage: 500 MG ORAL QD X 14 DAYS
     Route: 048
     Dates: start: 201405, end: 20140911

REACTIONS (2)
  - Economic problem [None]
  - Drug dose omission [None]

NARRATIVE: CASE EVENT DATE: 20140917
